FAERS Safety Report 18661719 (Version 1)
Quarter: 2020Q4

REPORT INFORMATION
  Report Type: Report from Study
  Country: None (occurrence: US)
  Receive Date: 20201224
  Receipt Date: 20201224
  Transmission Date: 20210114
  Serious: Yes (Hospitalization)
  Sender: FDA-Public Use
  Company Number: US-ABBVIE-20K-163-3703858-00

PATIENT
  Sex: Male

DRUGS (1)
  1. VENCLEXTA [Suspect]
     Active Substance: VENETOCLAX
     Indication: ACUTE LYMPHOCYTIC LEUKAEMIA
     Route: 048
     Dates: start: 202011, end: 20201217

REACTIONS (4)
  - Impaired self-care [Unknown]
  - Off label use [Unknown]
  - Hypothyroidism [Unknown]
  - Trisomy 21 [Unknown]

NARRATIVE: CASE EVENT DATE: 2020
